FAERS Safety Report 18418954 (Version 1)
Quarter: 2020Q4

REPORT INFORMATION
  Report Type: Spontaneous
  Country: DK (occurrence: DK)
  Receive Date: 20201023
  Receipt Date: 20201023
  Transmission Date: 20210114
  Serious: Yes (Hospitalization, Other)
  Sender: FDA-Public Use
  Company Number: DK-BRISTOL-MYERS SQUIBB COMPANY-BMS-2020-087101

PATIENT
  Age: 77 Year
  Sex: Female

DRUGS (7)
  1. MOVICOL [Concomitant]
     Active Substance: POLYETHYLENE GLYCOL 3350\POTASSIUM CHLORIDE\SODIUM BICARBONATE\SODIUM CHLORIDE
     Indication: CONSTIPATION
     Dosage: 1 LEAFLET DAILY AND 1 LEAFLET AS NECESSARY.
     Route: 048
     Dates: start: 20200717
  2. TOILAX [Concomitant]
     Active Substance: BISACODYL
     Indication: CONSTIPATION
     Dosage: STRENGTH 5 MILLIGRAM
     Route: 048
     Dates: start: 20200612
  3. SYMBICORT [Concomitant]
     Active Substance: BUDESONIDE\FORMOTEROL FUMARATE DIHYDRATE
     Indication: ASTHMA
     Dosage: STRENGTH: 4,5+160 MIKROG/DOSIS.
     Route: 055
     Dates: start: 20150618
  4. MIRTAZAPIN ORION [Concomitant]
     Active Substance: MIRTAZAPINE
     Indication: DEPRESSION
     Dosage: 1 TABLET NIGHT, 2X1/2 AS NECESSARY.
     Route: 048
     Dates: start: 20200625
  5. DONEPEZIL STADA [Concomitant]
     Indication: DEMENTIA
     Dosage: 15 MILLIGRAM, QD
     Route: 048
     Dates: start: 20200919
  6. ELIQUIS [Suspect]
     Active Substance: APIXABAN
     Indication: PULMONARY EMBOLISM
     Dosage: 10 MG DAILY, STRENGTH 2.5
     Route: 048
     Dates: start: 202005, end: 20201011
  7. SOLIFENACIN SANDOZ [Concomitant]
     Active Substance: SOLIFENACIN
     Indication: HYPERTONIC BLADDER
     Dosage: 5 MILLIGRAM, QD
     Route: 048
     Dates: start: 20200819

REACTIONS (1)
  - Cerebral haemorrhage [Not Recovered/Not Resolved]

NARRATIVE: CASE EVENT DATE: 20201009
